FAERS Safety Report 8809371 (Version 1)
Quarter: 2012Q4

REPORT INFORMATION
  Report Type: Report from Study
  Country: CA (occurrence: CA)
  Receive Date: 20120926
  Receipt Date: 20120926
  Transmission Date: 20130627
  Serious: Yes (Other)
  Sender: FDA-Public Use
  Company Number: CA-JNJFOC-20120907848

PATIENT
  Sex: Female
  Weight: 69 kg

DRUGS (3)
  1. STELARA [Suspect]
     Indication: PSORIASIS
     Dates: start: 20100810
  2. CRESTOR [Concomitant]
  3. SYNTHROID [Concomitant]

REACTIONS (1)
  - Respiratory tract infection [Unknown]
